FAERS Safety Report 9152441 (Version 1)
Quarter: 2013Q1

REPORT INFORMATION
  Report Type: Spontaneous
  Country: BR (occurrence: BR)
  Receive Date: 20130308
  Receipt Date: 20130308
  Transmission Date: 20140127
  Serious: Yes (Other)
  Sender: FDA-Public Use
  Company Number: BR-PFIZER INC-2013075877

PATIENT
  Age: 65 Year
  Sex: Male

DRUGS (4)
  1. EFEXOR XR [Suspect]
     Indication: RELAXATION THERAPY
     Dosage: 75 MG (ONE CAPSULE), 1X/DAY
     Route: 048
     Dates: start: 2009, end: 2010
  2. ATACAND [Concomitant]
     Dosage: UNK
     Dates: start: 2011
  3. OMEPRAZOLE [Concomitant]
     Dosage: 40 MG, UNK
     Dates: start: 2009
  4. PACO [Concomitant]
     Dosage: 30 MG, UNK
     Dates: start: 201301

REACTIONS (5)
  - Lower limb fracture [Not Recovered/Not Resolved]
  - Bone erosion [Unknown]
  - Fall [Unknown]
  - Renal disorder [Unknown]
  - Blood pressure increased [Not Recovered/Not Resolved]
